FAERS Safety Report 6060364-2 (Version None)
Quarter: 2009Q1

REPORT INFORMATION
  Report Type: 
  Country: None (occurrence: None)
  Receive Date: 20090130
  Receipt Date: 20090130
  Transmission Date: 20090719
  Serious: No
  Sender: FDA-Public Use
  Company Number: None

PATIENT
  Age: 51 Year
  Sex: Female
  Weight: 98.4306 kg

DRUGS (1)
  1. CRESTOR [Suspect]
     Indication: BLOOD CHOLESTEROL ABNORMAL
     Dosage: ONE EACH DAY PO
     Route: 048
     Dates: start: 20081130, end: 20081214

REACTIONS (4)
  - INJECTION SITE PAIN [None]
  - JOINT LOCK [None]
  - PAIN IN EXTREMITY [None]
  - TRIGGER FINGER [None]
